FAERS Safety Report 7404249-5 (Version None)
Quarter: 2011Q2

REPORT INFORMATION
  Report Type: 
  Country: None (occurrence: None)
  Receive Date: 20110408
  Receipt Date: 20110330
  Transmission Date: 20111010
  Serious: Yes (Death)
  Sender: FDA-Public Use
  Company Number: PHHY2011JP26985

PATIENT
  Sex: Male
  Weight: 66 kg

DRUGS (8)
  1. EXJADE [Suspect]
     Indication: IRON OVERLOAD
     Dosage: 750 MG, DAILY
     Route: 048
     Dates: start: 20100104, end: 20100729
  2. NEORAL [Suspect]
     Indication: APLASTIC ANAEMIA
     Dosage: 100 MG, DAILY
     Route: 048
     Dates: start: 20100104
  3. EXJADE [Suspect]
     Dosage: 500 MG, DAILY
     Route: 048
     Dates: start: 20100730, end: 20100902
  4. AMARYL [Suspect]
     Indication: TYPE 2 DIABETES MELLITUS
     Dosage: 3 MG
     Route: 048
     Dates: start: 20100104
  5. PREDONINE [Concomitant]
     Indication: APLASTIC ANAEMIA
     Dosage: 7.5 MG, UNK
     Route: 048
     Dates: start: 20100104, end: 20110104
  6. ADONA [Concomitant]
     Indication: PROPHYLAXIS
     Dosage: 90 MG, UNK
     Route: 048
     Dates: start: 20110104, end: 20110104
  7. EXJADE [Suspect]
     Dosage: 500 MG, DAILY
     Route: 048
     Dates: start: 20101001
  8. MIGLITOL [Concomitant]
     Indication: TYPE 2 DIABETES MELLITUS
     Dosage: 150 MG, UNK
     Route: 048
     Dates: start: 20100104, end: 20110104

REACTIONS (6)
  - DEAFNESS [None]
  - DROWNING [None]
  - BLOOD CREATININE INCREASED [None]
  - BLOOD ALKALINE PHOSPHATASE INCREASED [None]
  - WHITE BLOOD CELL COUNT DECREASED [None]
  - BLOOD UREA INCREASED [None]
